FAERS Safety Report 25959641 (Version 1)
Quarter: 2025Q4

REPORT INFORMATION
  Report Type: Report from Study
  Country: CA (occurrence: CA)
  Receive Date: 20251026
  Receipt Date: 20251026
  Transmission Date: 20260117
  Serious: Yes (Hospitalization)
  Sender: HLS THERAPEUTICS
  Company Number: CA-HLS-202502858

PATIENT

DRUGS (1)
  1. CLOZARIL [Suspect]
     Active Substance: CLOZAPINE
     Indication: Product used for unknown indication
     Route: 048
     Dates: start: 20111114

REACTIONS (1)
  - Gastritis [Unknown]

NARRATIVE: CASE EVENT DATE: 20251020
